FAERS Safety Report 7602007-X (Version None)
Quarter: 2011Q3

REPORT INFORMATION
  Report Type: 
  Country: None (occurrence: None)
  Receive Date: 20110711
  Receipt Date: 20110506
  Transmission Date: 20111222
  Serious: No
  Sender: FDA-Public Use
  Company Number: US-BAUSCH-2011BL002979

PATIENT

DRUGS (2)
  1. ZIRGAN [Suspect]
     Indication: OFF LABEL USE
     Route: 047
  2. ZIRGAN [Suspect]
     Indication: KERATOPLASTY
     Route: 047

REACTIONS (1)
  - TOXICITY TO VARIOUS AGENTS [None]
